FAERS Safety Report 9557538 (Version 4)
Quarter: 2013Q4

REPORT INFORMATION
  Report Type: Report from Study
  Country: US (occurrence: US)
  Receive Date: 20130926
  Receipt Date: 20131114
  Transmission Date: 20140711
  Serious: Yes (Hospitalization)
  Sender: FDA-Public Use
  Company Number: US-ACTELION-A-US2013-88979

PATIENT
  Age: 62 Year
  Sex: Female

DRUGS (3)
  1. VENTAVIS [Suspect]
     Indication: PULMONARY ARTERIAL HYPERTENSION
     Dosage: UNK
     Route: 055
  2. LETAIRIS [Suspect]
     Dosage: 10 MG, UNK
     Dates: start: 20100812
  3. ADCIRCA [Concomitant]

REACTIONS (6)
  - Blood pressure abnormal [Unknown]
  - Constipation [Unknown]
  - Pulmonary arterial hypertension [Unknown]
  - Sinusitis [Unknown]
  - Headache [Unknown]
  - Cough [Unknown]
